FAERS Safety Report 25347399 (Version 1)
Quarter: 2025Q2

REPORT INFORMATION
  Report Type: Report from Study
  Country: CA (occurrence: CA)
  Receive Date: 20250522
  Receipt Date: 20250522
  Transmission Date: 20250716
  Serious: Yes (Hospitalization)
  Sender: ABBVIE
  Company Number: CA-ABBVIE-6289794

PATIENT
  Age: 51 Year
  Sex: Female

DRUGS (1)
  1. SKYRIZI [Suspect]
     Active Substance: RISANKIZUMAB-RZAA
     Indication: Crohn^s disease
     Route: 058

REACTIONS (9)
  - Intestinal obstruction [Unknown]
  - Drug ineffective [Unknown]
  - Pharyngeal disorder [Unknown]
  - Abdominal pain upper [Recovered/Resolved]
  - Myalgia [Recovered/Resolved]
  - Arthralgia [Recovered/Resolved]
  - Pruritus [Recovered/Resolved]
  - Lymphadenopathy [Unknown]
  - Gait disturbance [Unknown]

NARRATIVE: CASE EVENT DATE: 20241101
